FAERS Safety Report 23525384 (Version 1)
Quarter: 2024Q1

REPORT INFORMATION
  Report Type: Spontaneous
  Country: FR (occurrence: FR)
  Receive Date: 20240215
  Receipt Date: 20240215
  Transmission Date: 20240410
  Serious: Yes (Life-Threatening, Hospitalization, Disabling, Other)
  Sender: FDA-Public Use
  Company Number: FR-SA-N124622

PATIENT
  Age: 37 Year
  Sex: Female

DRUGS (5)
  1. DANAZOL [Suspect]
     Active Substance: DANAZOL
     Indication: Immune thrombocytopenia
     Dosage: 600 MG, QD
     Route: 048
     Dates: start: 199503, end: 20000915
  2. HALDOL [Concomitant]
     Active Substance: HALOPERIDOL
     Dosage: UNK
     Route: 048
  3. CARPIPRAMINE DIHYDROCHLORIDE [Concomitant]
     Active Substance: CARPIPRAMINE DIHYDROCHLORIDE
     Dosage: UNK
     Route: 048
  4. CYAMEMAZINE [Concomitant]
     Active Substance: CYAMEMAZINE
     Dosage: UNK
     Route: 048
  5. ANAFRANIL [Concomitant]
     Active Substance: CLOMIPRAMINE HYDROCHLORIDE
     Dosage: 75 MG
     Route: 048

REACTIONS (3)
  - Hepatocellular carcinoma [Recovered/Resolved]
  - Abdominal pain upper [Recovered/Resolved]
  - Hepatomegaly [Recovered/Resolved]

NARRATIVE: CASE EVENT DATE: 20000801
